FAERS Safety Report 18916288 (Version 1)
Quarter: 2021Q1

REPORT INFORMATION
  Report Type: Report from Study
  Country: CA (occurrence: CA)
  Receive Date: 20210219
  Receipt Date: 20210219
  Transmission Date: 20210420
  Serious: Yes (Other)
  Sender: FDA-Public Use
  Company Number: PHHY2019CA076575

PATIENT
  Age: 50 Year
  Sex: Female

DRUGS (2)
  1. GILENYA [Suspect]
     Active Substance: FINGOLIMOD HYDROCHLORIDE
     Indication: RELAPSING-REMITTING MULTIPLE SCLEROSIS
     Dosage: UNK
     Route: 048
     Dates: start: 20190313
  2. GILENYA [Suspect]
     Active Substance: FINGOLIMOD HYDROCHLORIDE
     Dosage: UNK, BID
     Route: 048
     Dates: start: 20190728, end: 2019

REACTIONS (18)
  - Anxiety [Unknown]
  - Stress [Unknown]
  - Gait disturbance [Unknown]
  - Somnolence [Unknown]
  - Multiple sclerosis relapse [Unknown]
  - Band sensation [Recovered/Resolved]
  - Feeling abnormal [Unknown]
  - Chest discomfort [Unknown]
  - Muscular weakness [Unknown]
  - Panic attack [Unknown]
  - Muscle spasms [Unknown]
  - Nightmare [Unknown]
  - Dizziness [Unknown]
  - Hemiparesis [Unknown]
  - Menopause [Unknown]
  - Accidental overdose [Unknown]
  - Fatigue [Unknown]
  - Hypoaesthesia [Unknown]

NARRATIVE: CASE EVENT DATE: 20190313
